FAERS Safety Report 7167142-1 (Version None)
Quarter: 2010Q4

REPORT INFORMATION
  Report Type: 
  Country: None (occurrence: None)
  Receive Date: 20101213
  Receipt Date: 20101213
  Transmission Date: 20110411
  Serious: Yes (Hospitalization, Other)
  Sender: FDA-Public Use
  Company Number: None

PATIENT
  Age: 95 Year
  Sex: Female
  Weight: 70.3075 kg

DRUGS (1)
  1. DARVOCET [Suspect]
     Indication: ARTHRITIS
     Dosage: PO
     Route: 048
     Dates: start: 20070101, end: 20071103

REACTIONS (7)
  - CHEST DISCOMFORT [None]
  - DIZZINESS [None]
  - DRUG WITHDRAWAL SYNDROME [None]
  - FEELING ABNORMAL [None]
  - LIMB INJURY [None]
  - OEDEMA PERIPHERAL [None]
  - TINNITUS [None]
